FAERS Safety Report 9692967 (Version 3)
Quarter: 2014Q1

REPORT INFORMATION
  Report Type: Spontaneous
  Country: IT (occurrence: IT)
  Receive Date: 20131118
  Receipt Date: 20140107
  Transmission Date: 20141002
  Serious: Yes (Other)
  Sender: FDA-Public Use
  Company Number: IT-JNJFOC-20131107073

PATIENT
  Age: 17 Year
  Sex: Male
  Weight: 56 kg

DRUGS (3)
  1. REMICADE [Suspect]
     Indication: CROHN^S DISEASE
     Dosage: STRENGTH: 100 MG
     Route: 042
     Dates: start: 20131011
  2. REMICADE [Suspect]
     Indication: CROHN^S DISEASE
     Dosage: 5 MG/ KG.
     Route: 042
     Dates: start: 20131025, end: 20131206
  3. URBASON [Concomitant]
     Indication: PREMEDICATION
     Route: 042
     Dates: start: 20131025

REACTIONS (2)
  - Asthma [Recovered/Resolved]
  - Infusion related reaction [Recovered/Resolved]
